FAERS Safety Report 25059031 (Version 1)
Quarter: 2025Q1

REPORT INFORMATION
  Report Type: Spontaneous
  Country: CN (occurrence: CN)
  Receive Date: 20250310
  Receipt Date: 20250310
  Transmission Date: 20250408
  Serious: Yes (Other)
  Sender: ROCHE
  Company Number: CN-CHEPLA-2025002845

PATIENT
  Age: 80 Year
  Sex: Female
  Weight: 47.5 kg

DRUGS (3)
  1. BEVACIZUMAB [Suspect]
     Active Substance: BEVACIZUMAB
     Indication: Colon cancer
     Dosage: 350 MG QD; APPROVAL NO. GYZZ S20210045
     Route: 042
     Dates: start: 20250216, end: 20250216
  2. CAPECITABINE [Suspect]
     Active Substance: CAPECITABINE
     Indication: Colon cancer
     Dosage: 1.5 G BID; APPROVAL NO. GYZZ H20073024; 8TH CYCLE
     Route: 048
     Dates: start: 20250105, end: 20250119
  3. OXALIPLATIN [Suspect]
     Active Substance: OXALIPLATIN
     Indication: Colon cancer
     Dosage: 130 MG QD; APPROVAL NO. GYZZ H20213060; 8TH CYCLE
     Route: 042
     Dates: start: 20250105, end: 20250105

REACTIONS (1)
  - Myelosuppression [Recovered/Resolved]
